FAERS Safety Report 8192139-2 (Version None)
Quarter: 2012Q1

REPORT INFORMATION
  Report Type: 
  Country: None (occurrence: None)
  Receive Date: 20120307
  Receipt Date: 20120228
  Transmission Date: 20120608
  Serious: Yes (Hospitalization)
  Sender: FDA-Public Use
  Company Number: DE-GILEAD-2012-0051742

PATIENT
  Sex: Male

DRUGS (9)
  1. TORSEMIDE [Concomitant]
     Indication: DIASTOLIC DYSFUNCTION
     Dosage: 20 MG, UNK
     Route: 048
  2. FLUTICASONE PROPIONATE/SALMETEROL [Concomitant]
     Indication: CHRONIC OBSTRUCTIVE PULMONARY DISEASE
     Dosage: 2 UNK, BID
     Route: 055
  3. ASPIRIN [Concomitant]
     Indication: ARTERIOSCLEROSIS CORONARY ARTERY
     Dosage: 100 MG, UNK
     Route: 048
  4. ENALAPRIL MALEATE [Concomitant]
     Indication: CARDIAC FAILURE
     Dosage: 10 MG, UNK
     Route: 048
  5. ALLOPURINOL [Concomitant]
     Indication: HYPERURICAEMIA
     Dosage: 150 MG, UNK
     Route: 048
  6. RANOLAZINE [Suspect]
     Indication: CARDIAC FAILURE
     Dosage: 375 MG, BID
     Route: 048
     Dates: start: 20110301, end: 20111201
  7. ASPIRIN [Concomitant]
     Indication: PERIPHERAL ARTERIAL OCCLUSIVE DISEASE
  8. ENALAPRIL MALEATE [Concomitant]
     Indication: DIASTOLIC DYSFUNCTION
  9. TORSEMIDE [Concomitant]
     Indication: CARDIAC FAILURE

REACTIONS (3)
  - RENAL FAILURE ACUTE [None]
  - DISCOMFORT [None]
  - CYTOLOGY ABNORMAL [None]
